FAERS Safety Report 19200080 (Version 1)
Quarter: 2021Q2

REPORT INFORMATION
  Report Type: Other
  Country: GB (occurrence: GB)
  Receive Date: 20210429
  Receipt Date: 20210429
  Transmission Date: 20210717
  Serious: No
  Sender: FDA-Public Use
  Company Number: GB-LUPIN PHARMACEUTICALS INC.-2021-05734

PATIENT
  Age: 58 Year
  Sex: Male
  Weight: 66.8 kg

DRUGS (1)
  1. SERTRALINE [Suspect]
     Active Substance: SERTRALINE HYDROCHLORIDE
     Indication: DEPRESSION
     Dosage: 1 DOSAGE FORM, QD (TAKE ONE IN THE MORNING)
     Route: 048

REACTIONS (2)
  - Joint stiffness [Recovered/Resolved]
  - Headache [Recovered/Resolved]
